FAERS Safety Report 9500199 (Version 1)
Quarter: 2013Q3

REPORT INFORMATION
  Report Type: Spontaneous
  Country: US (occurrence: US)
  Receive Date: 20130905
  Receipt Date: 20130905
  Transmission Date: 20140515
  Serious: No
  Sender: FDA-Public Use
  Company Number: US-BAYER-2013-107143

PATIENT
  Age: 46 Year
  Sex: Female
  Weight: 52.15 kg

DRUGS (1)
  1. BETASERON [Suspect]
     Indication: MULTIPLE SCLEROSIS
     Dosage: UNK
     Dates: start: 200202, end: 200210

REACTIONS (2)
  - White blood cell count decreased [None]
  - Red blood cell count decreased [None]
